FAERS Safety Report 8055032-1 (Version None)
Quarter: 2011Q4

REPORT INFORMATION
  Report Type: 
  Country: None (occurrence: None)
  Receive Date: 20111216
  Receipt Date: 20110411
  Transmission Date: 20120403
  Serious: Yes (Other)
  Sender: FDA-Public Use
  Company Number: 275849USA

PATIENT
  Age: 40 Year
  Sex: Female
  Weight: 56.246 kg

DRUGS (2)
  1. PARAGARD T 380A [Suspect]
     Indication: CONTRACEPTION
     Dates: start: 20070101, end: 20110325
  2. SERTRALINE HYDROCHLORIDE [Concomitant]

REACTIONS (3)
  - MEDICAL DEVICE COMPLICATION [None]
  - DEVICE EXPULSION [None]
  - VAGINAL DISCHARGE [None]
